FAERS Safety Report 23074915 (Version 4)
Quarter: 2024Q2

REPORT INFORMATION
  Report Type: Report from Study
  Country: PY (occurrence: PY)
  Receive Date: 20231017
  Receipt Date: 20240625
  Transmission Date: 20240716
  Serious: Yes (Hospitalization)
  Sender: FDA-Public Use
  Company Number: PY-ROCHE-3438075

PATIENT
  Age: 54 Year
  Sex: Male

DRUGS (1)
  1. ACTEMRA [Suspect]
     Active Substance: TOCILIZUMAB
     Indication: Rheumatoid arthritis
     Dosage: 162 MG/0,9 ML
     Route: 058
     Dates: start: 20230110

REACTIONS (4)
  - Cellulitis [Recovered/Resolved]
  - Blister [Recovering/Resolving]
  - Oedema blister [Recovering/Resolving]
  - Swelling [Recovering/Resolving]

NARRATIVE: CASE EVENT DATE: 20230930
